FAERS Safety Report 9464130 (Version 1)
Quarter: 2013Q3

REPORT INFORMATION
  Report Type: Spontaneous
  Country: IN (occurrence: IN)
  Receive Date: 20130819
  Receipt Date: 20130819
  Transmission Date: 20140515
  Serious: Yes (Other)
  Sender: FDA-Public Use
  Company Number: IN-MYLANLABS-2013S1017573

PATIENT
  Age: 55 Year
  Sex: Female

DRUGS (2)
  1. PACLITAXEL [Suspect]
     Indication: CERVIX CARCINOMA
     Dosage: 2 CYCLES OF CHEMOTHERAPY
     Route: 065
  2. CARBOPLATIN [Concomitant]
     Indication: CERVIX CARCINOMA
     Dosage: 2 CYCLES OF CHEMOTHERAPY
     Route: 065

REACTIONS (1)
  - Systemic lupus erythematosus [Recovering/Resolving]
